FAERS Safety Report 14912362 (Version 6)
Quarter: 2019Q1

REPORT INFORMATION
  Report Type: Spontaneous
  Country: US (occurrence: US)
  Receive Date: 20180518
  Receipt Date: 20190108
  Transmission Date: 20190417
  Serious: No
  Sender: FDA-Public Use
  Company Number: US-PFIZER INC-2018205556

PATIENT
  Age: 59 Year
  Sex: Female
  Weight: 77.98 kg

DRUGS (2)
  1. IBRANCE [Suspect]
     Active Substance: PALBOCICLIB
     Dosage: 125 MG, CYCLIC (DAYS 1-21 EVERY 28 DAYS)
     Route: 048
  2. IBRANCE [Suspect]
     Active Substance: PALBOCICLIB
     Indication: BREAST CANCER METASTATIC
     Dosage: 125 MG, CYCLIC (DAYS 1-21 EVERY 28 DAYS)
     Route: 048
     Dates: start: 20180426

REACTIONS (13)
  - Product dose omission [Unknown]
  - Flatulence [Unknown]
  - Lymphoedema [Unknown]
  - Neoplasm progression [Unknown]
  - Rib fracture [Unknown]
  - Bronchitis [Recovered/Resolved]
  - Weight increased [Unknown]
  - Abdominal distension [Unknown]
  - Fatigue [Unknown]
  - Hair disorder [Unknown]
  - Decreased appetite [Unknown]
  - Rash [Unknown]
  - Dyspnoea [Unknown]

NARRATIVE: CASE EVENT DATE: 2018
